FAERS Safety Report 20717646 (Version 4)
Quarter: 2022Q3

REPORT INFORMATION
  Report Type: Report from Study
  Country: US (occurrence: US)
  Receive Date: 20220417
  Receipt Date: 20220817
  Transmission Date: 20221027
  Serious: Yes (Other)
  Sender: FDA-Public Use
  Company Number: US-BRISTOL-MYERS SQUIBB COMPANY-2022-017660

PATIENT
  Age: 68 Year
  Sex: Male
  Weight: 81.6 kg

DRUGS (2)
  1. REVLIMID [Suspect]
     Active Substance: LENALIDOMIDE
     Indication: Plasma cell myeloma
     Dosage: 21/BTL, 1CAP
     Route: 048
     Dates: start: 20220307
  2. REVLIMID [Suspect]
     Active Substance: LENALIDOMIDE
     Dosage: 21/BTL, 1CAP
     Route: 048
     Dates: start: 20220307

REACTIONS (3)
  - Dyspepsia [Unknown]
  - Rash pruritic [Unknown]
  - Rash macular [Unknown]
